FAERS Safety Report 10195550 (Version 2)
Quarter: 2014Q2

REPORT INFORMATION
  Report Type: Spontaneous
  Country: US (occurrence: US)
  Receive Date: 20140527
  Receipt Date: 20140609
  Transmission Date: 20141212
  Serious: Yes (Death)
  Sender: FDA-Public Use
  Company Number: US-AMGEN-USASP2014037529

PATIENT
  Age: 84 Year
  Sex: Female
  Weight: 53.97 kg

DRUGS (19)
  1. PROLIA [Suspect]
     Indication: OSTEOPOROSIS POSTMENOPAUSAL
     Dosage: 60 MG/ML, Q6MO
     Route: 065
     Dates: start: 20131209
  2. HEMATINIC PLUS                     /01778801/ [Concomitant]
     Dosage: AT NOON
     Dates: start: 20131126
  3. LIDODERM [Concomitant]
     Dosage: 5 %, UNK, 8 AM TO 8 PM
  4. GABAPENTIN [Concomitant]
     Dosage: 100 MG, TID
  5. FERROUS SULPHATE                   /00023503/ [Concomitant]
     Dosage: 325 MG, BID
  6. FAMOTIDINE [Concomitant]
     Dosage: 20 MG, BID
  7. TRAMADOL [Concomitant]
     Dosage: 50 MG, UNK
  8. LABETALOL [Concomitant]
     Dosage: 100 MG, 1/2 BID
  9. PRAVASTATIN [Concomitant]
     Dosage: 80 MG, QHS
  10. LEVOTHYROXINE [Concomitant]
     Dosage: 50 MUG, QD
  11. MIRTAZAPINE [Concomitant]
     Dosage: 15 MG, QHS
  12. DIGOXIN [Concomitant]
     Dosage: 0.125 MG, QD
  13. CALCIUM [Concomitant]
  14. VITAMIN D                          /00107901/ [Concomitant]
     Dosage: UNK UNK, QD
  15. MINERALS NOS [Concomitant]
     Dosage: UNK UNK, QD
  16. SENNALAX                           /00142208/ [Concomitant]
     Dosage: PRN
  17. XANAX [Concomitant]
     Dosage: 0.25 MG, PRN
  18. LUNESTA [Concomitant]
     Dosage: 3 MG, QHS
  19. OXYGEN [Concomitant]
     Dosage: 24 HRS

REACTIONS (1)
  - Death [Fatal]
